FAERS Safety Report 7254673-9 (Version None)
Quarter: 2011Q1

REPORT INFORMATION
  Report Type: 
  Country: None (occurrence: None)
  Receive Date: 20110129
  Receipt Date: 20100405
  Transmission Date: 20110831
  Serious: No
  Sender: FDA-Public Use
  Company Number: US-ABBOTT-10P-163-0636665-00

PATIENT
  Sex: Female
  Weight: 63.56 kg

DRUGS (3)
  1. HUMIRA [Suspect]
     Indication: CROHN'S DISEASE
     Dates: start: 20090401
  2. DILANTIN [Concomitant]
     Indication: EPILEPSY
  3. ZAROLTIN [Concomitant]
     Indication: EPILEPSY

REACTIONS (2)
  - NASOPHARYNGITIS [None]
  - COUGH [None]
